FAERS Safety Report 9539122 (Version 1)
Quarter: 2013Q2

REPORT INFORMATION
  Report Type: Spontaneous
  Country: US (occurrence: None)
  Receive Date: 20130521
  Receipt Date: 20130521
  Transmission Date: 20140414
  Serious: No
  Sender: FDA-Public Use
  Company Number: 1000042953

PATIENT
  Age: 75 Year
  Sex: Male

DRUGS (14)
  1. TUNDORZA PRESSAIR (ACLIDINIUM BROMIDE) (400 MICROGRAM, POWDER) [Suspect]
     Indication: CHRONIC OBSTRUCTIVE PULMONARY DISEASE
     Dosage: 800 MCG (400 MCG,2 IN 1 D), RESPIRATORY (INHALATION)
     Route: 055
     Dates: start: 20130220
  2. ALLEGRA (FEXOFENADINE HYDROCHLORIDE) (FEXOFENADINE HYDROCHLORIDE) [Concomitant]
  3. BAYER ASPIRIN (ACETYLSALICYLIC ACID) (ACETYLSALICYLIC ACID)? [Concomitant]
  4. PERFOROMIST (FORMOTEROL FUMARATE) (INHALANT) (FORMOTEROL FUMARATE) [Concomitant]
  5. BROVANA (ARFORMOTEROL TARTRATE) (INHALANT) (ARFORMOTEROL TARTRATE) [Concomitant]
  6. NOVOLOG (INSULIN ASPART) (INSULIN ASPART) [Concomitant]
  7. LANTUS (INSULIN GLARGINE) (INSULIN GLARGINE) [Suspect]
  8. JANUVIA (SITAGLIPTIN PHOSPHATE) (SITAGLIPTIN PHOSPHATE) [Concomitant]
  9. COUMADIN (WARFARIN) (WARFARIN) [Concomitant]
  10. COREG (CARVEDIOLOL) (6.25 MILLIGRAM) (CARVEDILOL) [Concomitant]
  11. CALTRATE (CALCIUM CARBONATE) (CALCIUM CARBONATE) [Concomitant]
  12. VITAMIN B-12 (CYANOCOBALAMIN) (CYANOCOBALAMIN) [Concomitant]
  13. OSTEO BI-FLEX (OSTEO BI-FLEX) OSTEO BI-FLEX) [Concomitant]
  14. QUINAPRIL (QUINAPRIL) (QUINAPRIL) [Concomitant]

REACTIONS (1)
  - Blood glucose increased [None]
